FAERS Safety Report 16975965 (Version 2)
Quarter: 2019Q4

REPORT INFORMATION
  Report Type: Spontaneous
  Country: US (occurrence: US)
  Receive Date: 20191030
  Receipt Date: 20191106
  Transmission Date: 20200122
  Serious: Yes (Other)
  Sender: FDA-Public Use
  Company Number: US-ASTRAZENECA-2019SE11610

PATIENT
  Sex: Male

DRUGS (11)
  1. PRILOSEC [Suspect]
     Active Substance: OMEPRAZOLE MAGNESIUM
     Route: 048
     Dates: start: 2004
  2. AGRYLIN [Concomitant]
     Active Substance: ANAGRELIDE HYDROCHLORIDE
  3. LOSARTAN. [Concomitant]
     Active Substance: LOSARTAN
  4. RANITIDINE. [Concomitant]
     Active Substance: RANITIDINE
  5. ACIPHEX [Suspect]
     Active Substance: RABEPRAZOLE SODIUM
     Route: 065
  6. HYDREA [Concomitant]
     Active Substance: HYDROXYUREA
  7. ASPIRIN. [Concomitant]
     Active Substance: ASPIRIN
  8. LISINOPRIL. [Concomitant]
     Active Substance: LISINOPRIL
  9. LABETALOL [Concomitant]
     Active Substance: LABETALOL\LABETALOL HYDROCHLORIDE
  10. PRILOSEC [Suspect]
     Active Substance: OMEPRAZOLE MAGNESIUM
     Route: 048
     Dates: start: 20110713
  11. PROTONIX [Suspect]
     Active Substance: PANTOPRAZOLE SODIUM
     Route: 065
     Dates: start: 2004

REACTIONS (4)
  - Renal failure [Unknown]
  - Renal injury [Unknown]
  - Rebound acid hypersecretion [Unknown]
  - Chronic kidney disease [Unknown]
